FAERS Safety Report 14742302 (Version 1)
Quarter: 2018Q2

REPORT INFORMATION
  Report Type: Spontaneous
  Country: IE (occurrence: IE)
  Receive Date: 20180410
  Receipt Date: 20180410
  Transmission Date: 20180711
  Serious: Yes (Hospitalization)
  Sender: FDA-Public Use
  Company Number: IE-MYLANLABS-2018M1023794

PATIENT
  Sex: Male

DRUGS (1)
  1. CLOZARIL [Suspect]
     Active Substance: CLOZAPINE
     Indication: SCHIZOPHRENIA
     Dosage: UNK
     Route: 048
     Dates: start: 19970326, end: 201804

REACTIONS (3)
  - Colon neoplasm [Recovering/Resolving]
  - Intestinal obstruction [Recovered/Resolved]
  - Rectal neoplasm [Recovering/Resolving]

NARRATIVE: CASE EVENT DATE: 2018
